FAERS Safety Report 8902107 (Version 1)
Quarter: 2012Q4

REPORT INFORMATION
  Report Type: 
  Country: PH (occurrence: PH)
  Receive Date: 20121112
  Receipt Date: 20121112
  Transmission Date: 20130627
  Serious: Yes (Death)
  Sender: FDA-Public Use
  Company Number: PHHY2012PH093548

PATIENT
  Age: 65 Year
  Sex: Female

DRUGS (3)
  1. GLIVEC [Suspect]
     Indication: CHRONIC MYELOID LEUKAEMIA
     Dosage: 400 mg/day
     Dates: start: 20100118, end: 20121016
  2. GLIVEC [Suspect]
     Dosage: 600 mg/day
     Dates: start: 20121016, end: 20121017
  3. BLOOD TRANSFUSION, AUXILIARY PRODUCTS [Concomitant]

REACTIONS (2)
  - Death [Fatal]
  - Platelet count decreased [Unknown]
